FAERS Safety Report 17526922 (Version 1)
Quarter: 2020Q1

REPORT INFORMATION
  Report Type: Spontaneous
  Country: US (occurrence: US)
  Receive Date: 20200311
  Receipt Date: 20200311
  Transmission Date: 20200409
  Serious: No
  Sender: FDA-Public Use
  Company Number: None

PATIENT
  Age: 30 Year
  Sex: Male
  Weight: 78.75 kg

DRUGS (1)
  1. SUBLOCADE [Suspect]
     Active Substance: BUPRENORPHINE
     Indication: DRUG DEPENDENCE
     Dates: start: 20200212

REACTIONS (5)
  - Skin irritation [None]
  - Arthropod bite [None]
  - Skin swelling [None]
  - Wound [None]
  - Erythema [None]

NARRATIVE: CASE EVENT DATE: 20190309
